FAERS Safety Report 9509427 (Version 1)
Quarter: 2013Q3

REPORT INFORMATION
  Report Type: Spontaneous
  Country: US (occurrence: US)
  Receive Date: 20130909
  Receipt Date: 20130909
  Transmission Date: 20140515
  Serious: No
  Sender: FDA-Public Use
  Company Number: US-BRISTOL-MYERS SQUIBB COMPANY-17293408

PATIENT
  Age: 55 Year
  Sex: Female
  Weight: 126.98 kg

DRUGS (14)
  1. ABILIFY [Suspect]
     Dates: start: 201301
  2. TORSEMIDE [Concomitant]
     Dosage: 1DF= 50-UNITS NOS
  3. SPIRONOLACTONE [Concomitant]
  4. VALTREX [Concomitant]
  5. SINGULAIR [Concomitant]
     Dosage: 1DF= 10-UNITS NOS
  6. XANAX [Concomitant]
     Indication: SLEEP DISORDER
  7. MULTIVITAMIN [Concomitant]
  8. MUCINEX [Concomitant]
  9. SIMVASTATIN [Concomitant]
  10. CYMBALTA [Concomitant]
  11. ASPIRIN [Concomitant]
  12. PROZAC [Concomitant]
     Dosage: 1DF= 60-UNITS NOS
  13. PREVACID [Concomitant]
  14. PRILOSEC [Concomitant]

REACTIONS (1)
  - Insomnia [Unknown]
